FAERS Safety Report 10221279 (Version 1)
Quarter: 2014Q2

REPORT INFORMATION
  Report Type: Spontaneous
  Country: PE (occurrence: PE)
  Receive Date: 20140606
  Receipt Date: 20140606
  Transmission Date: 20141212
  Serious: Yes (Hospitalization, Other)
  Sender: FDA-Public Use
  Company Number: PE-PFIZER INC-2014152640

PATIENT
  Age: 73 Year
  Sex: Female

DRUGS (2)
  1. DETRUSITOL SR [Suspect]
     Dosage: UNK
     Route: 048
  2. LIPITOR [Concomitant]

REACTIONS (2)
  - Fatigue [Not Recovered/Not Resolved]
  - Cardiac disorder [Unknown]
